FAERS Safety Report 8713182 (Version 3)
Quarter: 2012Q4

REPORT INFORMATION
  Report Type: Report from Study
  Country: GB (occurrence: GB)
  Receive Date: 20120808
  Receipt Date: 20121004
  Transmission Date: 20130627
  Serious: Yes (Hospitalization)
  Sender: FDA-Public Use
  Company Number: GB-ROCHE-1088325

PATIENT
  Age: 61 Year
  Sex: Female
  Weight: 88 kg

DRUGS (3)
  1. PACLITAXEL [Suspect]
     Indication: BREAST CANCER
     Dosage: Date of last dose prior to SAE 02/Jul/2012
     Route: 042
     Dates: start: 20120516, end: 20120724
  2. HERCEPTIN [Suspect]
     Indication: BREAST CANCER
     Dosage: Date of last dose prior to SAE 02/JUl/2012
     Route: 042
     Dates: start: 20120515, end: 20120724
  3. PERTUZUMAB [Suspect]
     Indication: BREAST CANCER
     Dosage: Date of last dose prior to SAE 25/jun/2012
     Route: 042
     Dates: start: 20120515, end: 20120724

REACTIONS (1)
  - Pneumonitis [Recovering/Resolving]
